FAERS Safety Report 12686884 (Version 1)
Quarter: 2016Q3

REPORT INFORMATION
  Report Type: Spontaneous
  Country: US (occurrence: US)
  Receive Date: 20160825
  Receipt Date: 20160825
  Transmission Date: 20161109
  Serious: No
  Sender: FDA-Public Use
  Company Number: US-JAZZ-2016-US-007266

PATIENT
  Sex: Female

DRUGS (37)
  1. PRIMIDONE. [Concomitant]
     Active Substance: PRIMIDONE
  2. MULTIVITAMINS [Concomitant]
     Active Substance: VITAMINS
  3. KLONOPIN [Concomitant]
     Active Substance: CLONAZEPAM
  4. ZOLOFT [Concomitant]
     Active Substance: SERTRALINE HYDROCHLORIDE
  5. ALEVE [Suspect]
     Active Substance: NAPROXEN SODIUM
     Indication: PRODUCT USED FOR UNKNOWN INDICATION
     Dosage: UNKNOWN DOSE
  6. NORCO [Concomitant]
     Active Substance: ACETAMINOPHEN\HYDROCODONE BITARTRATE
  7. ADDERALL [Concomitant]
     Active Substance: AMPHETAMINE ASPARTATE\AMPHETAMINE SULFATE\DEXTROAMPHETAMINE SACCHARATE\DEXTROAMPHETAMINE SULFATE
  8. CIPRO [Concomitant]
     Active Substance: CIPROFLOXACIN HYDROCHLORIDE
  9. COMPAZINE [Concomitant]
     Active Substance: PROCHLORPERAZINE MALEATE
  10. IRON [Concomitant]
     Active Substance: IRON
  11. XYREM [Suspect]
     Active Substance: SODIUM OXYBATE
     Indication: NARCOLEPSY
     Dosage: 2.25 G, BID
     Route: 048
     Dates: start: 201603
  12. XYREM [Suspect]
     Active Substance: SODIUM OXYBATE
     Indication: CATAPLEXY
  13. AMINO ACID [Concomitant]
     Active Substance: AMINO ACIDS
  14. FERROUS SULFATE. [Concomitant]
     Active Substance: FERROUS SULFATE
  15. FOLIC ACID. [Concomitant]
     Active Substance: FOLIC ACID
  16. PARAFON FORTE DSC [Concomitant]
     Active Substance: CHLORZOXAZONE
  17. TOPIRAMATE ER [Concomitant]
  18. ZOFRAN [Concomitant]
     Active Substance: ONDANSETRON HYDROCHLORIDE
  19. CALCIUM +D [Concomitant]
     Active Substance: CALCIUM\VITAMIN D
  20. EPIPEN [Concomitant]
     Active Substance: EPINEPHRINE
  21. BENADRYL ALLERGY [Concomitant]
     Active Substance: DIPHENHYDRAMINE HYDROCHLORIDE
  22. DILAUDID [Concomitant]
     Active Substance: HYDROMORPHONE HYDROCHLORIDE
  23. LEVOCARNITINE. [Concomitant]
     Active Substance: LEVOCARNITINE
  24. VITAMIN B12 [Concomitant]
     Active Substance: CYANOCOBALAMIN
  25. ADDERALL XR [Concomitant]
     Active Substance: AMPHETAMINE ASPARTATE\AMPHETAMINE SULFATE\DEXTROAMPHETAMINE SACCHARATE\DEXTROAMPHETAMINE SULFATE
  26. CRANBERRY CONCENTRATE [Concomitant]
     Active Substance: CRANBERRY CONCENTRATE
  27. PROAIR HFA [Concomitant]
     Active Substance: ALBUTEROL SULFATE
  28. KEFLEX [Concomitant]
     Active Substance: CEPHALEXIN
  29. PYRIDIUM [Concomitant]
     Active Substance: PHENAZOPYRIDINE
  30. BENTYL [Concomitant]
     Active Substance: DICYCLOMINE HYDROCHLORIDE
  31. VALIUM [Concomitant]
     Active Substance: DIAZEPAM
  32. NAPROSYN [Concomitant]
     Active Substance: NAPROXEN
  33. REGLAN [Concomitant]
     Active Substance: METOCLOPRAMIDE HYDROCHLORIDE
  34. NUVIGIL [Concomitant]
     Active Substance: ARMODAFINIL
  35. TOPAMAX [Concomitant]
     Active Substance: TOPIRAMATE
  36. VITAMIN D2 [Concomitant]
     Active Substance: ERGOCALCIFEROL
  37. PROVIGIL [Concomitant]
     Active Substance: MODAFINIL

REACTIONS (3)
  - Tonsillitis [Unknown]
  - Fatigue [Not Recovered/Not Resolved]
  - Weight decreased [Unknown]
